FAERS Safety Report 5075822-7 (Version None)
Quarter: 2006Q3

REPORT INFORMATION
  Report Type: 
  Country: None (occurrence: None)
  Receive Date: 20060809
  Receipt Date: 20060802
  Transmission Date: 20061208
  Serious: Yes (Hospitalization)
  Sender: FDA-Public Use
  Company Number: ES-GLAXOSMITHKLINE-B0433389A

PATIENT
  Age: 29 Year
  Sex: Female
  Weight: 77 kg

DRUGS (4)
  1. LAMICTAL [Suspect]
     Indication: EPILEPSY
     Dosage: 50MG PER DAY
     Route: 048
     Dates: start: 20060515, end: 20060528
  2. DEPAKENE [Suspect]
     Indication: EPILEPSY
     Dosage: 900MG PER DAY
     Route: 048
     Dates: start: 20010101
  3. AUGMENTIN [Suspect]
     Indication: ACUTE TONSILLITIS
     Dosage: 1.5G PER DAY
     Route: 048
     Dates: start: 20060529, end: 20060601
  4. ACETAMINOPHEN [Suspect]
     Route: 042
     Dates: start: 20060529, end: 20060529

REACTIONS (5)
  - DIZZINESS [None]
  - DRUG INTERACTION [None]
  - PRURITUS [None]
  - RASH [None]
  - SOMNOLENCE [None]
